FAERS Safety Report 26207501 (Version 1)
Quarter: 2025Q4

REPORT INFORMATION
  Report Type: Spontaneous
  Country: TR (occurrence: TR)
  Receive Date: 20251229
  Receipt Date: 20251229
  Transmission Date: 20260117
  Serious: Yes (Life-Threatening)
  Sender: ROCHE
  Company Number: TR-ROCHE-10000469864

PATIENT
  Age: 33 Year
  Sex: Male
  Weight: 74 kg

DRUGS (1)
  1. OCREVUS [Suspect]
     Active Substance: OCRELIZUMAB
     Indication: Product used for unknown indication
     Route: 042

REACTIONS (4)
  - Dyspnoea [Recovered/Resolved]
  - Stridor [Recovered/Resolved]
  - Laryngeal oedema [Recovered/Resolved]
  - Palatal oedema [Recovered/Resolved]

NARRATIVE: CASE EVENT DATE: 20251203
